FAERS Safety Report 19637855 (Version 3)
Quarter: 2021Q3

REPORT INFORMATION
  Report Type: Report from Study
  Country: US (occurrence: US)
  Receive Date: 20210729
  Receipt Date: 20210908
  Transmission Date: 20211014
  Serious: Yes (Hospitalization, Other)
  Sender: FDA-Public Use
  Company Number: US-BAUSCH-BL-2021-026141

PATIENT
  Age: 59 Year
  Sex: Female
  Weight: 67.92 kg

DRUGS (17)
  1. CALCIUM ACETATE. [Concomitant]
     Active Substance: CALCIUM ACETATE
     Indication: PRODUCT USED FOR UNKNOWN INDICATION
     Dosage: 2 CAPSULE WITH EVERY MEAL
     Route: 048
     Dates: start: 20180521
  2. LABETALOL [Concomitant]
     Active Substance: LABETALOL\LABETALOL HYDROCHLORIDE
     Indication: PRODUCT USED FOR UNKNOWN INDICATION
     Route: 048
     Dates: start: 20210107
  3. MELATONIN [Concomitant]
     Active Substance: MELATONIN
     Indication: PRODUCT USED FOR UNKNOWN INDICATION
     Dosage: 1 IN EVENING
     Route: 048
     Dates: start: 20210105
  4. HEPATITIS B VACCINE [Concomitant]
     Active Substance: HEPATITIS B VIRUS VACCINE
     Indication: PRODUCT USED FOR UNKNOWN INDICATION
  5. LEVOTHYROXINE. [Concomitant]
     Active Substance: LEVOTHYROXINE
     Indication: PRODUCT USED FOR UNKNOWN INDICATION
     Dosage: 1 TABLET EVERY MORNING
     Route: 048
     Dates: start: 20180521
  6. KEPPRA [Concomitant]
     Active Substance: LEVETIRACETAM
     Indication: MYOCLONUS
  7. RENVELA [Concomitant]
     Active Substance: SEVELAMER CARBONATE
     Indication: PRODUCT USED FOR UNKNOWN INDICATION
     Dosage: 1 TABLET WITH EVERY MEAL
     Route: 048
     Dates: start: 20190704
  8. INFLUENZA VACCINE [Concomitant]
     Active Substance: INFLUENZA VIRUS VACCINE
     Indication: PRODUCT USED FOR UNKNOWN INDICATION
     Dates: start: 2021
  9. XIFAXAN [Suspect]
     Active Substance: RIFAXIMIN
     Indication: PRODUCT USED FOR UNKNOWN INDICATION
     Route: 048
     Dates: start: 20200413
  10. SINGULAIR [Concomitant]
     Active Substance: MONTELUKAST SODIUM
     Indication: PRODUCT USED FOR UNKNOWN INDICATION
     Dosage: EVERY EVENING
     Route: 048
     Dates: start: 20210105
  11. BENADRYL [Concomitant]
     Active Substance: DIPHENHYDRAMINE HYDROCHLORIDE
     Indication: PRODUCT USED FOR UNKNOWN INDICATION
     Dosage: AS DIRECTED
     Route: 048
     Dates: start: 20210505
  12. HYDROXYZINE HCL [Concomitant]
     Active Substance: HYDROXYZINE HYDROCHLORIDE
     Indication: PRODUCT USED FOR UNKNOWN INDICATION
     Route: 048
     Dates: start: 20210107
  13. HUMALOG HD KWIKPEN [Concomitant]
     Indication: PRODUCT USED FOR UNKNOWN INDICATION
     Dosage: INSULIN PEN (100/1 UNIT/ML EACH) AS NEEDED
     Route: 058
     Dates: start: 20180521
  14. LISINOPRIL. [Concomitant]
     Active Substance: LISINOPRIL
     Indication: PRODUCT USED FOR UNKNOWN INDICATION
     Route: 048
     Dates: start: 20190702
  15. NIFEDIPINE. [Concomitant]
     Active Substance: NIFEDIPINE
     Indication: PRODUCT USED FOR UNKNOWN INDICATION
     Dosage: EXTENDED RELEASE, EVERY EVENING
     Route: 048
     Dates: start: 20180918
  16. PAXIL [Concomitant]
     Active Substance: PAROXETINE HYDROCHLORIDE
     Indication: PRODUCT USED FOR UNKNOWN INDICATION
     Route: 048
     Dates: start: 20190704
  17. URSODIOL. [Concomitant]
     Active Substance: URSODIOL
     Indication: PRURITUS
     Dosage: EVERY EVENING
     Route: 048
     Dates: start: 20210107

REACTIONS (12)
  - Confusional state [Unknown]
  - Atrioventricular block complete [Not Recovered/Not Resolved]
  - Blood pressure increased [Unknown]
  - Subdural haematoma [Not Recovered/Not Resolved]
  - Bradycardia [Not Recovered/Not Resolved]
  - Fall [Unknown]
  - Hypoxia [Recovered/Resolved]
  - Hemiparesis [Not Recovered/Not Resolved]
  - Diarrhoea [Unknown]
  - COVID-19 [Recovered/Resolved]
  - Myoclonus [Not Recovered/Not Resolved]
  - Tachycardia [Not Recovered/Not Resolved]

NARRATIVE: CASE EVENT DATE: 20210429
